FAERS Safety Report 11146305 (Version 1)
Quarter: 2015Q2

REPORT INFORMATION
  Report Type: Spontaneous
  Country: MX (occurrence: MX)
  Receive Date: 20150528
  Receipt Date: 20150528
  Transmission Date: 20150821
  Serious: Yes (Hospitalization, Other)
  Sender: FDA-Public Use
  Company Number: MX-PFIZER INC-2015179587

PATIENT
  Sex: Male

DRUGS (3)
  1. CLOROTIAZIDA [Interacting]
     Active Substance: CHLOROTHIAZIDE
     Indication: HYPERTENSION
  2. IRBESARTAN. [Interacting]
     Active Substance: IRBESARTAN
     Indication: HYPERTENSION
  3. CELEBREX [Suspect]
     Active Substance: CELECOXIB

REACTIONS (2)
  - Drug interaction [Unknown]
  - Blood pressure decreased [Unknown]

NARRATIVE: CASE EVENT DATE: 20150512
